FAERS Safety Report 20038558 (Version 1)
Quarter: 2021Q4

REPORT INFORMATION
  Report Type: Report from Study
  Country: US (occurrence: US)
  Receive Date: 20211105
  Receipt Date: 20211105
  Transmission Date: 20220303
  Serious: Yes (Other)
  Sender: FDA-Public Use
  Company Number: US-BIOGEN-2021BI01064886

PATIENT
  Sex: Female

DRUGS (1)
  1. TECFIDERA [Suspect]
     Active Substance: DIMETHYL FUMARATE
     Indication: Multiple sclerosis
     Route: 065
     Dates: start: 20180511, end: 20210801

REACTIONS (8)
  - Hepatic cancer [Unknown]
  - Multiple sclerosis relapse [Unknown]
  - Stress [Unknown]
  - Loss of control of legs [Unknown]
  - Sensitivity to weather change [Unknown]
  - Cognitive disorder [Unknown]
  - Hepatic steatosis [Unknown]
  - Hepatic enzyme abnormal [Unknown]
